FAERS Safety Report 18647276 (Version 1)
Quarter: 2020Q4

REPORT INFORMATION
  Report Type: Spontaneous
  Country: US (occurrence: US)
  Receive Date: 20201222
  Receipt Date: 20201222
  Transmission Date: 20210114
  Serious: No
  Sender: FDA-Public Use
  Company Number: US-AUROBINDO-AUR-APL-2020-004051

PATIENT
  Age: 77 Year
  Sex: Female
  Weight: 81.6 kg

DRUGS (3)
  1. NAPROXEN SODIUM TABLETS USP 550MG [Suspect]
     Active Substance: NAPROXEN SODIUM
     Indication: PSORIASIS
     Dosage: 02 DOSAGE FORM, ONCE A DAY
     Route: 048
     Dates: start: 20200115
  2. METFORMIN [Concomitant]
     Active Substance: METFORMIN HYDROCHLORIDE
     Indication: PRODUCT USED FOR UNKNOWN INDICATION
     Dosage: UNK
     Route: 065
  3. BENICAR [Concomitant]
     Active Substance: OLMESARTAN MEDOXOMIL
     Indication: PRODUCT USED FOR UNKNOWN INDICATION
     Dosage: 1 DOSAGE FORM, ONCE A DAY
     Route: 065

REACTIONS (6)
  - Insomnia [Recovered/Resolved]
  - Product substitution issue [Unknown]
  - Product use in unapproved indication [Unknown]
  - Abdominal discomfort [Recovered/Resolved]
  - Sleep disorder [Recovered/Resolved]
  - Illness [Recovered/Resolved]
